FAERS Safety Report 15164494 (Version 2)
Quarter: 2018Q3

REPORT INFORMATION
  Report Type: Spontaneous
  Country: US (occurrence: US)
  Receive Date: 20180719
  Receipt Date: 20180929
  Transmission Date: 20181010
  Serious: Yes (Other)
  Sender: FDA-Public Use
  Company Number: US-009507513-1807USA004642

PATIENT
  Sex: Male

DRUGS (1)
  1. TICE BCG [Suspect]
     Active Substance: BACILLUS CALMETTE-GUERIN SUBSTRAIN TICE LIVE ANTIGEN
     Indication: BLADDER CANCER
     Dosage: UNK, ONCE WEEKLY FOR 6 WEEKS
     Route: 043
     Dates: start: 20180702

REACTIONS (2)
  - Drug dose omission [Unknown]
  - Urethral stenosis [Not Recovered/Not Resolved]

NARRATIVE: CASE EVENT DATE: 201807
